FAERS Safety Report 6228073-4 (Version None)
Quarter: 2009Q2

REPORT INFORMATION
  Report Type: 
  Country: None (occurrence: None)
  Receive Date: 20090610
  Receipt Date: 20090610
  Transmission Date: 20091009
  Serious: Yes (Other)
  Sender: FDA-Public Use
  Company Number: None

PATIENT
  Age: 49 Year
  Sex: Female
  Weight: 145.151 kg

DRUGS (1)
  1. TRICOR [Suspect]
     Indication: BLOOD TRIGLYCERIDES INCREASED
     Dosage: ONE TABLET DAILY PO
     Route: 048
     Dates: start: 20090406, end: 20090609

REACTIONS (7)
  - ABASIA [None]
  - BLOOD GLUCOSE INCREASED [None]
  - NOCTURIA [None]
  - OEDEMA PERIPHERAL [None]
  - PRURITUS [None]
  - URTICARIA [None]
  - VASCULAR INJURY [None]
